FAERS Safety Report 12418404 (Version 1)
Quarter: 2016Q2

REPORT INFORMATION
  Report Type: Spontaneous
  Country: US (occurrence: None)
  Receive Date: 20160527
  Receipt Date: 20160527
  Transmission Date: 20160815
  Serious: Yes (Death)
  Sender: FDA-Public Use
  Company Number: None

PATIENT
  Age: 52 Year
  Sex: Female

DRUGS (2)
  1. CITALOPRAM [Suspect]
     Active Substance: CITALOPRAM HYDROBROMIDE
     Indication: SCHIZOPHRENIA
     Dosage: CITALOPRAM 20MG 1 TABLET EVERY EVENING ORAL
     Route: 048
     Dates: start: 20121123, end: 20160407
  2. CLOZAPINE 50MG TEVA [Suspect]
     Active Substance: CLOZAPINE
     Indication: SCHIZOPHRENIA
     Dosage: CLOZAPINE 50 MG 1 TABLET AFTER BREAKFAST AND 1 ORAL
     Route: 048
     Dates: start: 20080805, end: 20160404

REACTIONS (1)
  - Cardiac arrest [None]

NARRATIVE: CASE EVENT DATE: 20160421
